FAERS Safety Report 24846644 (Version 1)
Quarter: 2025Q1

REPORT INFORMATION
  Report Type: Spontaneous
  Country: US (occurrence: US)
  Receive Date: 20250115
  Receipt Date: 20250115
  Transmission Date: 20250408
  Serious: No
  Sender: FERRING
  Company Number: US-FERRINGPH-2024FE02556

PATIENT
  Age: 71 Year
  Sex: Female

DRUGS (1)
  1. CLENPIQ [Suspect]
     Active Substance: ANHYDROUS CITRIC ACID\MAGNESIUM OXIDE\SODIUM PICOSULFATE
     Indication: Bowel preparation
     Route: 065
     Dates: start: 20240514, end: 20240514

REACTIONS (5)
  - Blood pressure increased [Recovered/Resolved]
  - Frequent bowel movements [Recovered/Resolved]
  - Muscle spasms [Recovered/Resolved]
  - Headache [Recovered/Resolved]
  - Vomiting [Recovered/Resolved]

NARRATIVE: CASE EVENT DATE: 20240514
